FAERS Safety Report 8339510 (Version 3)
Quarter: 2015Q1

REPORT INFORMATION
  Report Type: Report from Study
  Country: US (occurrence: US)
  Receive Date: 20120117
  Receipt Date: 20150209
  Transmission Date: 20150721
  Serious: Yes (Death)
  Sender: FDA-Public Use
  Company Number: US-ROCHE-1028263

PATIENT
  Sex: Female

DRUGS (8)
  1. LOVENOX [Concomitant]
     Active Substance: ENOXAPARIN SODIUM
     Route: 065
     Dates: end: 20100207
  2. COUMADIN [Concomitant]
     Active Substance: WARFARIN SODIUM
     Route: 065
     Dates: end: 20100206
  3. AMBIEN [Concomitant]
     Active Substance: ZOLPIDEM TARTRATE
     Route: 048
  4. AVASTIN [Suspect]
     Active Substance: BEVACIZUMAB
     Indication: MALIGNANT PERITONEAL NEOPLASM
  5. AVASTIN [Suspect]
     Active Substance: BEVACIZUMAB
     Indication: OVARIAN CANCER
     Route: 042
     Dates: start: 20100127
  6. CYTOXAN [Concomitant]
     Active Substance: CYCLOPHOSPHAMIDE
     Route: 065
     Dates: start: 20100127
  7. DEXAMETHASONE. [Concomitant]
     Active Substance: DEXAMETHASONE
  8. EMEND [Concomitant]
     Active Substance: APREPITANT
     Route: 048

REACTIONS (6)
  - Death [Fatal]
  - Pyrexia [Unknown]
  - Dyspnoea [Unknown]
  - Eructation [Unknown]
  - Food intolerance [Unknown]
  - Hyperchlorhydria [Unknown]
